FAERS Safety Report 8115597-8 (Version None)
Quarter: 2012Q1

REPORT INFORMATION
  Report Type: 
  Country: None (occurrence: None)
  Receive Date: 20120124
  Receipt Date: 20120109
  Transmission Date: 20120608
  Serious: Yes (Hospitalization)
  Sender: FDA-Public Use
  Company Number: 2012PROUSA00934

PATIENT
  Age: 66 Year
  Sex: Male

DRUGS (3)
  1. PROVENGE [Suspect]
     Indication: PROSTATE CANCER METASTATIC
     Dosage: 250 ML, SINGLE, INTRAVENOUS
     Route: 042
     Dates: start: 20111027, end: 20111027
  2. PROVENGE [Suspect]
     Dates: start: 20111212, end: 20111212
  3. PROVENGE [Suspect]
     Dates: start: 20111110, end: 20111110

REACTIONS (1)
  - CHOLELITHIASIS [None]
